FAERS Safety Report 25363510 (Version 1)
Quarter: 2025Q2

REPORT INFORMATION
  Report Type: Spontaneous
  Country: CA (occurrence: CA)
  Receive Date: 20250527
  Receipt Date: 20250527
  Transmission Date: 20250717
  Serious: Yes (Other)
  Sender: PFIZER
  Company Number: CA-PFIZER INC-202500106777

PATIENT
  Age: 24 Year
  Sex: Female
  Weight: 50.34 kg

DRUGS (1)
  1. DEPO-PROVERA [Suspect]
     Active Substance: MEDROXYPROGESTERONE ACETATE
     Indication: Contraception
     Route: 030

REACTIONS (6)
  - Back pain [Recovered/Resolved]
  - Erythema [Recovered/Resolved]
  - Limb discomfort [Recovered/Resolved]
  - Livedo reticularis [Recovered/Resolved]
  - Pallor [Recovered/Resolved]
  - Pruritus [Recovered/Resolved]
